FAERS Safety Report 7731698-8 (Version None)
Quarter: 2011Q3

REPORT INFORMATION
  Report Type: 
  Country: None (occurrence: None)
  Receive Date: 20110906
  Receipt Date: 20110624
  Transmission Date: 20111222
  Serious: No
  Sender: FDA-Public Use
  Company Number: US-AMGEN-USASP2011032369

PATIENT
  Age: 75 Year
  Sex: Female

DRUGS (17)
  1. CALCIUM CARBONATE [Concomitant]
     Dosage: 1 MG, UNK
  2. CYMBALTA [Concomitant]
  3. FEXOFENADINE [Concomitant]
     Dosage: 1 MG, QD
  4. LOSARTAN [Concomitant]
     Dosage: 1 MG, QD
  5. OXYCODONE HCL [Concomitant]
  6. ANTIBIOTIC EYE [Concomitant]
  7. COLACE [Concomitant]
     Dosage: 1 UNK, UNK
  8. PROLIA [Suspect]
     Indication: OSTEOPOROSIS POSTMENOPAUSAL
     Dosage: 60 MG, Q6MO
     Dates: start: 20110504
  9. ROPINIROLE [Concomitant]
     Dosage: 1 MG, UNK
  10. LEVOTHYROXINE SODIUM [Concomitant]
     Dosage: 1 A?G, QD
  11. NEXIUM [Concomitant]
     Dosage: 1 MG, UNK
  12. VERAPAMIL [Concomitant]
     Dosage: 1 MG, QD
  13. BACLOFEN [Concomitant]
  14. METFORMIN HCL [Concomitant]
     Dosage: 1 MG, UNK
  15. VITAMIN D [Concomitant]
     Dosage: 1 MG, QD
  16. PREDNISONE [Concomitant]
     Dosage: 1 MG, QD
  17. CENTRUM                            /00554501/ [Concomitant]
     Dosage: UNK UNK, QD

REACTIONS (3)
  - FEELING ABNORMAL [None]
  - ASTHENIA [None]
  - SOMNOLENCE [None]
